FAERS Safety Report 5277815-3 (Version None)
Quarter: 2007Q1

REPORT INFORMATION
  Report Type: 
  Country: None (occurrence: None)
  Receive Date: 20070327
  Receipt Date: 20070315
  Transmission Date: 20070707
  Serious: Yes (Death, Hospitalization, Other)
  Sender: FDA-Public Use
  Company Number: US-PFIZER INC-2006150475

PATIENT
  Sex: Male
  Weight: 81.6 kg

DRUGS (1)
  1. BEXTRA [Suspect]
     Indication: PAIN
     Route: 048
     Dates: start: 20030304, end: 20041111

REACTIONS (1)
  - MYOCARDIAL INFARCTION [None]
